FAERS Safety Report 9472632 (Version 1)
Quarter: 2013Q3

REPORT INFORMATION
  Report Type: Spontaneous
  Country: US (occurrence: US)
  Receive Date: 20130823
  Receipt Date: 20130823
  Transmission Date: 20140515
  Serious: Yes (Other)
  Sender: FDA-Public Use
  Company Number: US-ASTELLAS-2013US008876

PATIENT
  Sex: Female

DRUGS (1)
  1. MYRBETRIQ [Suspect]
     Indication: URINARY INCONTINENCE
     Dosage: 25 MG, UNKNOWN/D
     Route: 048
     Dates: start: 20130730

REACTIONS (6)
  - Hallucination [Unknown]
  - Amnesia [Unknown]
  - Disorientation [Unknown]
  - Nausea [Unknown]
  - Dyspepsia [Unknown]
  - Headache [Unknown]
